FAERS Safety Report 8953224 (Version 1)
Quarter: 2012Q4

REPORT INFORMATION
  Report Type: 
  Country: US (occurrence: US)
  Receive Date: 20121206
  Receipt Date: 20121206
  Transmission Date: 20130627
  Serious: Yes (Other)
  Sender: FDA-Public Use
  Company Number: US-AMGEN-USASP2012077088

PATIENT
  Age: 39 Year
  Sex: Female

DRUGS (2)
  1. ENBREL [Suspect]
     Indication: RHEUMATOID ARTHRITIS
     Dosage: 50 mg, qwk
     Dates: start: 20100503
  2. ENBREL [Suspect]
     Indication: PSORIASIS

REACTIONS (5)
  - Self-injurious ideation [Unknown]
  - Transplant [Unknown]
  - Emotional disorder [Not Recovered/Not Resolved]
  - Fear of death [Unknown]
  - Suicidal ideation [Not Recovered/Not Resolved]
